FAERS Safety Report 24589727 (Version 1)
Quarter: 2024Q4

REPORT INFORMATION
  Report Type: Spontaneous
  Country: JP (occurrence: JP)
  Receive Date: 20241107
  Receipt Date: 20241107
  Transmission Date: 20250115
  Serious: Yes (Other)
  Sender: OTSUKA
  Company Number: JP-OTSUKA-2024_029805

PATIENT

DRUGS (2)
  1. SAMSCA [Suspect]
     Active Substance: TOLVAPTAN
     Indication: Product used for unknown indication
     Dosage: UNK
     Route: 048
  2. FUROSEMIDE [Concomitant]
     Active Substance: FUROSEMIDE
     Indication: Product used for unknown indication
     Dosage: 40MG
     Route: 065

REACTIONS (6)
  - Femur fracture [Unknown]
  - Blood potassium decreased [Unknown]
  - Fall [Unknown]
  - Dizziness [Unknown]
  - Thirst [Unknown]
  - Wrong technique in product usage process [Unknown]
